FAERS Safety Report 16860197 (Version 2)
Quarter: 2019Q4

REPORT INFORMATION
  Report Type: Spontaneous
  Country: BR (occurrence: BR)
  Receive Date: 20190927
  Receipt Date: 20191107
  Transmission Date: 20200122
  Serious: Yes (Other)
  Sender: FDA-Public Use
  Company Number: BR-AMGEN-BRASP2019157791

PATIENT
  Age: 71 Year
  Sex: Female

DRUGS (1)
  1. ENBREL [Suspect]
     Active Substance: ETANERCEPT
     Indication: PRODUCT USED FOR UNKNOWN INDICATION
     Dosage: UNK
     Route: 065
     Dates: start: 20071111

REACTIONS (6)
  - Extremity necrosis [Unknown]
  - Arthropathy [Unknown]
  - Joint effusion [Unknown]
  - Finger deformity [Unknown]
  - Rheumatoid arthritis [Unknown]
  - Foot deformity [Unknown]
